FAERS Safety Report 19917257 (Version 3)
Quarter: 2023Q4

REPORT INFORMATION
  Report Type: Spontaneous
  Country: US (occurrence: US)
  Receive Date: 20211005
  Receipt Date: 20231226
  Transmission Date: 20240109
  Serious: No
  Sender: FDA-Public Use
  Company Number: US-009507513-2110USA000092

PATIENT
  Age: 64 Year
  Sex: Female

DRUGS (5)
  1. CUBICIN [Suspect]
     Active Substance: DAPTOMYCIN
     Indication: Enterococcal infection
     Dosage: 9.60 MILLIGRAM/KILOGRAM, QD
  2. CUBICIN [Suspect]
     Active Substance: DAPTOMYCIN
     Indication: Abdominal abscess
  3. FLUCONAZOLE [Concomitant]
     Active Substance: FLUCONAZOLE
  4. MEROPENEM [Concomitant]
     Active Substance: MEROPENEM
  5. CEFTRIAXONE [Concomitant]
     Active Substance: CEFTRIAXONE\CEFTRIAXONE SODIUM

REACTIONS (2)
  - Pathogen resistance [Unknown]
  - Product use in unapproved indication [Unknown]
